FAERS Safety Report 9225650 (Version 2)
Quarter: 2013Q2

REPORT INFORMATION
  Report Type: Spontaneous
  Country: US (occurrence: US)
  Receive Date: 20130411
  Receipt Date: 20130523
  Transmission Date: 20140414
  Serious: Yes (Death, Life-Threatening, Hospitalization, Disabling, Other)
  Sender: FDA-Public Use
  Company Number: US-GLAXOSMITHKLINE-A1019534A

PATIENT
  Age: 49 Year
  Sex: Male

DRUGS (3)
  1. PROMACTA [Suspect]
     Indication: CHRONIC HEPATITIS
     Dosage: 25MG PER DAY
     Route: 065
     Dates: start: 20130323, end: 20130325
  2. INTERFERON [Concomitant]
  3. RIBAVIRIN [Concomitant]

REACTIONS (7)
  - Multi-organ failure [Fatal]
  - Rhabdomyolysis [Not Recovered/Not Resolved]
  - Paralysis [Unknown]
  - Dehydration [Not Recovered/Not Resolved]
  - Nausea [Not Recovered/Not Resolved]
  - Vomiting [Not Recovered/Not Resolved]
  - Hypotension [Unknown]
